FAERS Safety Report 10289417 (Version 1)
Quarter: 2014Q3

REPORT INFORMATION
  Report Type: Spontaneous
  Country: IT (occurrence: IT)
  Receive Date: 20140710
  Receipt Date: 20140710
  Transmission Date: 20150326
  Serious: Yes (Other)
  Sender: FDA-Public Use
  Company Number: PHHY2014IT083748

PATIENT
  Age: 47 Year
  Sex: Female

DRUGS (5)
  1. PEGINTERFERON ALFA-2A [Interacting]
     Active Substance: PEGINTERFERON ALFA-2A
     Indication: CHRONIC HEPATITIS
     Dosage: 180 UG PER WEEK
  2. THIAMAZOLE [Suspect]
     Active Substance: METHIMAZOLE
     Dosage: 15 MG PER DAY
  3. THIAMAZOLE [Interacting]
     Active Substance: METHIMAZOLE
     Dosage: 10 MG PER DAY
  4. RIBAVIRIN. [Interacting]
     Active Substance: RIBAVIRIN
     Indication: CHRONIC HEPATITIS
     Dosage: 1000 MG PER DAY
  5. CARVEDILOL. [Concomitant]
     Active Substance: CARVEDILOL

REACTIONS (3)
  - Agranulocytosis [Recovering/Resolving]
  - Neutropenia [Recovering/Resolving]
  - Drug interaction [Unknown]
